FAERS Safety Report 10571438 (Version 1)
Quarter: 2014Q4

REPORT INFORMATION
  Report Type: Spontaneous
  Country: US (occurrence: None)
  Receive Date: 20141107
  Receipt Date: 20141107
  Transmission Date: 20150529
  Serious: No
  Sender: FDA-Public Use
  Company Number: None

PATIENT
  Age: 21 Year
  Sex: Female
  Weight: 56.7 kg

DRUGS (1)
  1. MIFEPREX [Suspect]
     Active Substance: MIFEPRISTONE
     Indication: ABORTION INDUCED
     Dosage: 3 PILLS  SINGLE ADMINISTRAT  ORAL
     Route: 048
     Dates: start: 20141101

REACTIONS (3)
  - Maternal exposure during pregnancy [None]
  - Therapeutic aspiration [None]
  - Vaginal haemorrhage [None]

NARRATIVE: CASE EVENT DATE: 20141103
